FAERS Safety Report 7594268-0 (Version None)
Quarter: 2011Q3

REPORT INFORMATION
  Report Type: 
  Country: None (occurrence: None)
  Receive Date: 20110706
  Receipt Date: 20110627
  Transmission Date: 20111222
  Serious: Yes (Hospitalization)
  Sender: FDA-Public Use
  Company Number: FR-ASTRAZENECA-2011SE10857

PATIENT
  Age: 75 Year
  Sex: Male

DRUGS (5)
  1. CRESTOR [Suspect]
     Route: 048
     Dates: start: 20060101, end: 20110201
  2. ARIXTRA [Concomitant]
  3. NICARDIPINE HCL [Concomitant]
  4. ASPIRIN [Concomitant]
  5. VASTAREL [Concomitant]

REACTIONS (1)
  - PULMONARY FIBROSIS [None]
